FAERS Safety Report 15988057 (Version 1)
Quarter: 2019Q1

REPORT INFORMATION
  Report Type: Spontaneous
  Country: US (occurrence: US)
  Receive Date: 20190220
  Receipt Date: 20190220
  Transmission Date: 20190418
  Serious: Yes (Other)
  Sender: FDA-Public Use
  Company Number: US-SHIRE-US201905130

PATIENT
  Sex: Female

DRUGS (2)
  1. MYDAYIS [Suspect]
     Active Substance: AMPHETAMINE ASPARTATE\AMPHETAMINE SULFATE\DEXTROAMPHETAMINE SACCHARATE\DEXTROAMPHETAMINE SULFATE
     Indication: OFF LABEL USE
  2. MYDAYIS [Suspect]
     Active Substance: AMPHETAMINE ASPARTATE\AMPHETAMINE SULFATE\DEXTROAMPHETAMINE SACCHARATE\DEXTROAMPHETAMINE SULFATE
     Indication: ATTENTION DEFICIT/HYPERACTIVITY DISORDER
     Dosage: 37.5 MILLIGRAM, 1X/DAY:QD
     Route: 065

REACTIONS (12)
  - Syncope [Unknown]
  - Fatigue [Unknown]
  - Delusion [Unknown]
  - Decreased appetite [Unknown]
  - Palpitations [Unknown]
  - Dermatillomania [Unknown]
  - Dyspnoea [Unknown]
  - Off label use [Unknown]
  - Feeling jittery [Unknown]
  - Hyperacusis [Unknown]
  - Irritability [Unknown]
  - Compulsive cheek biting [Unknown]
